FAERS Safety Report 8974066 (Version 1)
Quarter: 2012Q4

REPORT INFORMATION
  Report Type: 
  Country: US (occurrence: US)
  Receive Date: 20121218
  Receipt Date: 20121218
  Transmission Date: 20130627
  Serious: Yes (Other)
  Sender: FDA-Public Use
  Company Number: US-BAYER-2012-131909

PATIENT
  Age: 35 Year
  Sex: Female
  Weight: 58.96 kg

DRUGS (23)
  1. YAZ [Suspect]
  2. SYNTHROID [Concomitant]
  3. CITALOPRAM HYDROBROMIDE [Concomitant]
     Dosage: 40 mg, UNK
  4. METHYLPREDNISOLONE [Concomitant]
     Dosage: 4 mg, UNK
  5. CARISOPRODOL COMPOUND [Concomitant]
  6. ALPRAZOLAM [Concomitant]
     Dosage: 1 mg, UNK
  7. MIRAPEX [Concomitant]
     Dosage: 0.5 mg, UNK
  8. DESIPRAMINE [Concomitant]
     Dosage: 25 mg, UNK
  9. SERTRALINE [Concomitant]
     Dosage: 100 mg, UNK
  10. CYTOMEL [Concomitant]
     Dosage: 5 ?g, UNK
  11. CYTOMEL [Concomitant]
  12. TRAMADOL [Concomitant]
     Dosage: 50 mg, UNK
  13. TEMAZEPAM [Concomitant]
     Dosage: 30 mg, UNK
  14. ETODOLAC [Concomitant]
  15. MULTIVITAMIN [Concomitant]
  16. VITAMIN B12 [Concomitant]
  17. FISH OIL [Concomitant]
  18. ABILIFY [Concomitant]
  19. ABILIFY [Concomitant]
  20. L-LYSINE [Concomitant]
  21. FIBER [Concomitant]
  22. ZOLOFT [Concomitant]
  23. RESTORIL [Concomitant]

REACTIONS (2)
  - Cholecystitis chronic [None]
  - Deep vein thrombosis [None]
